FAERS Safety Report 4690138-6 (Version None)
Quarter: 2005Q2

REPORT INFORMATION
  Report Type: 
  Country: None (occurrence: None)
  Receive Date: 20050613
  Receipt Date: 20050526
  Transmission Date: 20051028
  Serious: Yes (Hospitalization)
  Sender: FDA-Public Use
  Company Number: DSA_26404_2005

PATIENT
  Age: 68 Year
  Sex: Female

DRUGS (4)
  1. TAVOR [Suspect]
     Dosage: DF ONCE PO
     Route: 048
     Dates: start: 20050502, end: 20050502
  2. DOXEPIN HCL [Suspect]
     Dosage: DF ONCE PO
     Route: 048
     Dates: start: 20050502, end: 20050502
  3. MIRTAZAPINE [Suspect]
     Dosage: DF ONCE PO
     Route: 048
     Dates: start: 20050502, end: 20050502
  4. TRUXAL [Suspect]
     Dosage: DF ONCE PO
     Route: 048
     Dates: start: 20050502, end: 20050502

REACTIONS (5)
  - DYSARTHRIA [None]
  - HEART RATE INCREASED [None]
  - INTENTIONAL MISUSE [None]
  - SOMNOLENCE [None]
  - TACHYCARDIA [None]
